FAERS Safety Report 18552628 (Version 2)
Quarter: 2020Q4

REPORT INFORMATION
  Report Type: Spontaneous
  Country: US (occurrence: US)
  Receive Date: 20201127
  Receipt Date: 20201224
  Transmission Date: 20210114
  Serious: Yes (Hospitalization, Other)
  Sender: FDA-Public Use
  Company Number: US-ABBVIE-20K-163-3659460-00

PATIENT
  Sex: Female
  Weight: 58.11 kg

DRUGS (9)
  1. XELJANZ XR [Suspect]
     Active Substance: TOFACITINIB CITRATE
     Dosage: HALF OF 11 MG TABLET AT LUNCH BY MOUTH
     Route: 048
     Dates: start: 20201118, end: 20201118
  2. GABAPENTIN. [Concomitant]
     Active Substance: GABAPENTIN
     Indication: FORMICATION
  3. PILOCARPINE. [Suspect]
     Active Substance: PILOCARPINE
     Indication: SJOGREN^S SYNDROME
     Route: 065
  4. PROLIA [Concomitant]
     Active Substance: DENOSUMAB
     Indication: OSTEOPOROSIS
     Dates: start: 2016
  5. AMITRIPTYLINE HCL [Concomitant]
     Active Substance: AMITRIPTYLINE
     Indication: MIGRAINE
     Route: 048
     Dates: start: 2005
  6. HUMIRA [Suspect]
     Active Substance: ADALIMUMAB
     Indication: RHEUMATOID ARTHRITIS
     Route: 058
     Dates: start: 2010
  7. XELJANZ XR [Suspect]
     Active Substance: TOFACITINIB CITRATE
     Indication: RHEUMATOID ARTHRITIS
     Dosage: HALF TABLET
     Route: 048
     Dates: start: 2018, end: 20201113
  8. ESCITALOPRAM [Concomitant]
     Active Substance: ESCITALOPRAM OXALATE
     Indication: ANXIETY
     Dosage: HALF TABLET DAILY
     Route: 048
     Dates: start: 2005
  9. VERAPAMIL ER [Concomitant]
     Active Substance: VERAPAMIL HYDROCHLORIDE
     Indication: MIGRAINE
     Dosage: EXTENDED RELEASE
     Route: 048

REACTIONS (11)
  - Peripheral coldness [Recovered/Resolved]
  - Chills [Recovered/Resolved]
  - Nausea [Recovered/Resolved]
  - Illness [Unknown]
  - Formication [Recovering/Resolving]
  - Paraesthesia [Recovering/Resolving]
  - Cataract [Recovered/Resolved]
  - Pruritus [Recovered/Resolved]
  - Neurological symptom [Recovered/Resolved]
  - Weight decreased [Recovered/Resolved]
  - Hyperhidrosis [Not Recovered/Not Resolved]

NARRATIVE: CASE EVENT DATE: 2008
